FAERS Safety Report 7151106-8 (Version None)
Quarter: 2010Q4

REPORT INFORMATION
  Report Type: 
  Country: None (occurrence: None)
  Receive Date: 20101123
  Receipt Date: 20101112
  Transmission Date: 20110411
  Serious: Yes (Other)
  Sender: FDA-Public Use
  Company Number: 2010SP055040

PATIENT
  Age: 42 Year
  Sex: Female
  Weight: 55 kg

DRUGS (7)
  1. ROCURONIUM BROMIDE [Suspect]
     Indication: NEUROMUSCULAR BLOCKING THERAPY
     Dosage: 33 MG;ONCE;IV
     Route: 042
     Dates: start: 20100311, end: 20100311
  2. PROPOFOL [Concomitant]
  3. SEVOFLURANE [Concomitant]
  4. XYLOCAINE /00033402/ [Concomitant]
  5. ROPIVACAINE HYDROCHLORIDE [Concomitant]
  6. FENTANYL /00174602/ [Concomitant]
  7. MORPHINE [Concomitant]

REACTIONS (3)
  - BLOOD GLUCOSE INCREASED [None]
  - DIABETES MELLITUS [None]
  - NEUROMUSCULAR BLOCK PROLONGED [None]
